FAERS Safety Report 13737531 (Version 2)
Quarter: 2017Q3

REPORT INFORMATION
  Report Type: Report from Study
  Country: FR (occurrence: FR)
  Receive Date: 20170710
  Receipt Date: 20170714
  Transmission Date: 20171127
  Serious: Yes (Death, Hospitalization)
  Sender: FDA-Public Use
  Company Number: FR-PFIZER INC-2017297111

PATIENT
  Age: 72 Year
  Sex: Male
  Weight: 56 kg

DRUGS (14)
  1. IMOVANE [Concomitant]
     Active Substance: ZOPICLONE
     Indication: SLEEP DISORDER
     Dosage: UNK
     Dates: start: 201611
  2. CORTANCYL [Concomitant]
     Active Substance: PREDNISONE
     Indication: NEOPLASM MALIGNANT
     Dosage: UNK
  3. BISOPROLOL [Concomitant]
     Active Substance: BISOPROLOL
     Indication: ARRHYTHMIA
     Dosage: UNK
     Dates: start: 201609
  4. CORDARONE [Concomitant]
     Active Substance: AMIODARONE HYDROCHLORIDE
     Indication: ARRHYTHMIA
     Dosage: 200 MG, UNK
     Dates: start: 201609
  5. INLYTA [Suspect]
     Active Substance: AXITINIB
     Dosage: 7 MG, 1X/DAY
     Dates: start: 201609, end: 20161103
  6. FUNGIZONE [Concomitant]
     Active Substance: AMPHOTERICIN B
     Indication: ORAL CANDIDIASIS
     Dosage: UNK
     Dates: start: 201609
  7. INLYTA [Suspect]
     Active Substance: AXITINIB
     Indication: METASTATIC RENAL CELL CARCINOMA
     Dosage: 5 MG, 2X/DAY
     Dates: start: 201609, end: 201609
  8. PARACETAMOL [Concomitant]
     Active Substance: ACETAMINOPHEN
     Indication: PAIN
     Dosage: UNK
  9. XANAX [Concomitant]
     Active Substance: ALPRAZOLAM
     Indication: SLEEP DISORDER
     Dosage: UNK
     Dates: start: 201609
  10. OXYNORM [Concomitant]
     Active Substance: OXYCODONE HYDROCHLORIDE
     Indication: PAIN
     Dosage: UNK
     Dates: end: 201610
  11. PERIKABIVEN [Concomitant]
     Active Substance: ALANINE\ARGININE\ASPARTIC ACID\CALCIUM CHLORIDE\DEXTROSE MONOHYDRATE\GLUTAMIC ACID\GLYCINE\HISTIDINE\ISOLEUCINE\LEUCINE\LYSINE HYDROCHLORIDE\MAGNESIUM SULFATE HEPTAHYDRATE\METHIONINE\PHENYLALANINE\POTASSIUM CHLORIDE\PROLINE\SERINE\SODIUM ACETATE\SODIUM GLYCEROPHOSPHATE ANHYDROUS\SOYBEAN OIL\THREONIN
     Indication: PARENTERAL NUTRITION
     Dosage: UNK
     Dates: start: 201609
  12. PLITICAN [Concomitant]
     Active Substance: ALIZAPRIDE HYDROCHLORIDE
     Indication: NAUSEA
     Dosage: UNK
     Dates: start: 201609
  13. OMEPRAZOLE. [Concomitant]
     Active Substance: OMEPRAZOLE
     Indication: GASTROOESOPHAGEAL REFLUX DISEASE
     Dosage: UNK
  14. INNOHEP [Concomitant]
     Active Substance: TINZAPARIN SODIUM
     Indication: PULMONARY EMBOLISM
     Dosage: UNK
     Dates: start: 201609

REACTIONS (2)
  - Decreased appetite [Recovering/Resolving]
  - Septic shock [Fatal]

NARRATIVE: CASE EVENT DATE: 20160920
